FAERS Safety Report 8350503-2 (Version None)
Quarter: 2012Q2

REPORT INFORMATION
  Report Type: 
  Country: None (occurrence: None)
  Receive Date: 20120510
  Receipt Date: 20120507
  Transmission Date: 20120825
  Serious: Yes (Hospitalization)
  Sender: FDA-Public Use
  Company Number: US-BAYER-2012-000704

PATIENT
  Age: 21 Year
  Sex: Female
  Weight: 90.703 kg

DRUGS (4)
  1. YAZ [Suspect]
     Dosage: UNK
     Route: 048
     Dates: start: 20090729, end: 20100101
  2. NAPROXEN [Concomitant]
     Dosage: 550 MG, UNK
     Dates: start: 20090629
  3. FERROUS SULFATE TAB [Concomitant]
     Dosage: 325 MG, UNK
     Dates: start: 20090629
  4. NEEVO [Concomitant]
     Dosage: UNK
     Dates: start: 20090228, end: 20090626

REACTIONS (7)
  - ABDOMINAL PAIN [None]
  - MENTAL DISORDER [None]
  - CHOLELITHIASIS [None]
  - ANHEDONIA [None]
  - PAIN [None]
  - ANXIETY [None]
  - INJURY [None]
